FAERS Safety Report 5246768-6 (Version None)
Quarter: 2007Q1

REPORT INFORMATION
  Report Type: 
  Country: None (occurrence: None)
  Receive Date: 20070226
  Receipt Date: 20070216
  Transmission Date: 20070707
  Serious: Yes (Other)
  Sender: FDA-Public Use
  Company Number: 2007AC00182

PATIENT
  Age: 81 Year
  Sex: Male

DRUGS (2)
  1. ZOLADEX [Suspect]
     Indication: PROSTATE CANCER STAGE III
     Route: 058
     Dates: start: 20000401
  2. ANDROCUR [Concomitant]
     Indication: HOT FLUSH
     Route: 048
     Dates: start: 20010101

REACTIONS (1)
  - PITUITARY TUMOUR BENIGN [None]
